FAERS Safety Report 16647322 (Version 2)
Quarter: 2019Q3

REPORT INFORMATION
  Report Type: Spontaneous
  Country: US (occurrence: US)
  Receive Date: 20190730
  Receipt Date: 20190913
  Transmission Date: 20191004
  Serious: No
  Sender: FDA-Public Use
  Company Number: US-PFIZER INC-2019323738

PATIENT
  Age: 41 Year
  Sex: Female

DRUGS (1)
  1. MORPHINE SULFATE. [Suspect]
     Active Substance: MORPHINE SULFATE
     Indication: PAIN
     Dosage: UNK
     Route: 048

REACTIONS (4)
  - Drug intolerance [Unknown]
  - Vomiting [Recovered/Resolved]
  - Drug hypersensitivity [Unknown]
  - Nausea [Recovered/Resolved]
